FAERS Safety Report 10912424 (Version 1)
Quarter: 2015Q1

REPORT INFORMATION
  Report Type: Spontaneous
  Country: US (occurrence: US)
  Receive Date: 20150313
  Receipt Date: 20150313
  Transmission Date: 20150721
  Serious: No
  Sender: FDA-Public Use
  Company Number: US-PFIZER INC-2015084555

PATIENT
  Age: 55 Year
  Sex: Female
  Weight: 58 kg

DRUGS (9)
  1. ACTIQ [Concomitant]
     Active Substance: FENTANYL CITRATE
     Indication: BREAKTHROUGH PAIN
     Dosage: 400 MCG OR MG, AS NEEDED
     Dates: start: 2003
  2. SOMA [Concomitant]
     Active Substance: CARISOPRODOL
  3. LIDODERM [Concomitant]
     Active Substance: LIDOCAINE
  4. DURAGESIC [Concomitant]
     Active Substance: FENTANYL
  5. LYRICA [Suspect]
     Active Substance: PREGABALIN
     Indication: PAIN IN EXTREMITY
  6. LYRICA [Suspect]
     Active Substance: PREGABALIN
     Indication: NEURALGIA
     Dosage: 75 MG, 2X/DAY
     Route: 048
  7. VALIUM [Concomitant]
     Active Substance: DIAZEPAM
  8. ROXICODONE [Concomitant]
     Active Substance: OXYCODONE HYDROCHLORIDE
  9. KLONOPIN [Concomitant]
     Active Substance: CLONAZEPAM
     Dosage: UNK
     Dates: start: 20150303

REACTIONS (3)
  - Salivary gland mass [Recovering/Resolving]
  - Body height decreased [Unknown]
  - Tooth disorder [Unknown]

NARRATIVE: CASE EVENT DATE: 201407
